FAERS Safety Report 7289177-0 (Version None)
Quarter: 2011Q1

REPORT INFORMATION
  Report Type: 
  Country: None (occurrence: None)
  Receive Date: 20110211
  Receipt Date: 20110202
  Transmission Date: 20110831
  Serious: Yes (Other)
  Sender: FDA-Public Use
  Company Number: FR-CEPHALON-2011000391

PATIENT
  Sex: Male

DRUGS (10)
  1. LEVOTHYROX [Concomitant]
  2. FENTANYL CITRATE [Suspect]
     Indication: CANCER PAIN
     Route: 002
     Dates: start: 20110119, end: 20110120
  3. LEXOMIL [Concomitant]
  4. FORTZAAR [Concomitant]
  5. MOVICOL [Concomitant]
  6. FENTANYL CITRATE [Suspect]
     Route: 002
     Dates: start: 20110121
  7. AMLODIPINE MERCK [Concomitant]
  8. DURAGESIC-100 [Suspect]
     Route: 062
     Dates: start: 20110117
  9. DURAGESIC-100 [Suspect]
     Route: 062
  10. DURAGESIC-100 [Suspect]
     Indication: CANCER PAIN
     Route: 062
     Dates: start: 20110111, end: 20110116

REACTIONS (4)
  - AGGRESSION [None]
  - SOMNOLENCE [None]
  - DRUG PRESCRIBING ERROR [None]
  - DRUG INEFFECTIVE [None]
